FAERS Safety Report 16573021 (Version 1)
Quarter: 2019Q3

REPORT INFORMATION
  Report Type: Report from Study
  Country: US (occurrence: US)
  Receive Date: 20190715
  Receipt Date: 20190715
  Transmission Date: 20191004
  Serious: Yes (Hospitalization)
  Sender: FDA-Public Use
  Company Number: US-GILEAD-2019-0418088

PATIENT
  Age: 43 Year
  Sex: Female

DRUGS (4)
  1. UPTRAVI [Concomitant]
     Active Substance: SELEXIPAG
  2. ELIQUIS [Concomitant]
     Active Substance: APIXABAN
  3. ADCIRCA [Concomitant]
     Active Substance: TADALAFIL
  4. AMBRISENTAN [Suspect]
     Active Substance: AMBRISENTAN
     Indication: PRODUCT USED FOR UNKNOWN INDICATION
     Dosage: `10 MG, QD
     Route: 048
     Dates: start: 20180523

REACTIONS (2)
  - Product use issue [Unknown]
  - Dyspnoea [Unknown]
